FAERS Safety Report 15412633 (Version 1)
Quarter: 2018Q3

REPORT INFORMATION
  Report Type: Spontaneous
  Country: DE (occurrence: DE)
  Receive Date: 20180921
  Receipt Date: 20180921
  Transmission Date: 20181010
  Serious: Yes (Other)
  Sender: FDA-Public Use
  Company Number: DE-TEVA-2018-DE-954126

PATIENT
  Age: 74 Year
  Sex: Female

DRUGS (3)
  1. EUTHYROX 75 MICROGRAM [Concomitant]
     Indication: AUTOIMMUNE THYROIDITIS
  2. AMOXICILLIN?RATIOPHARM [Suspect]
     Active Substance: AMOXICILLIN
     Indication: BRONCHITIS
     Route: 065
  3. NEBILET [Concomitant]
     Active Substance: NEBIVOLOL

REACTIONS (3)
  - Dyspnoea [Recovered/Resolved]
  - Rash generalised [Recovered/Resolved]
  - Anaphylactic shock [Recovered/Resolved]

NARRATIVE: CASE EVENT DATE: 201712
